FAERS Safety Report 5802609-7 (Version None)
Quarter: 2008Q3

REPORT INFORMATION
  Report Type: 
  Country: None (occurrence: None)
  Receive Date: 20080702
  Receipt Date: 20080623
  Transmission Date: 20090109
  Serious: Yes (Other)
  Sender: FDA-Public Use
  Company Number: L08-UKI-02186-01

PATIENT
  Age: 51 Year
  Sex: Male

DRUGS (4)
  1. PROPRANOLOL [Suspect]
     Indication: MIGRAINE
  2. SILDENAFIL CITRATE [Suspect]
  3. ATENOLOL [Suspect]
     Indication: HYPERTENSION
  4. DOSULEPIN [Concomitant]

REACTIONS (11)
  - BLOOD CORTISOL DECREASED [None]
  - BLOOD GROWTH HORMONE DECREASED [None]
  - DIPLOPIA [None]
  - DISTURBANCE IN ATTENTION [None]
  - HEADACHE [None]
  - HYPOPITUITARISM [None]
  - IIIRD NERVE PARALYSIS [None]
  - LETHARGY [None]
  - NAUSEA [None]
  - PITUITARY HAEMORRHAGE [None]
  - VISUAL FIELD DEFECT [None]
